FAERS Safety Report 15877686 (Version 1)
Quarter: 2019Q1

REPORT INFORMATION
  Report Type: Other
  Country: IT (occurrence: IT)
  Receive Date: 20190128
  Receipt Date: 20190128
  Transmission Date: 20190417
  Serious: Yes (Other)
  Sender: FDA-Public Use
  Company Number: IT-APOTEX-2019AP006870

PATIENT
  Age: 19 Year
  Sex: Female

DRUGS (1)
  1. QUETIAPINE. [Suspect]
     Active Substance: QUETIAPINE
     Indication: INTENTIONAL SELF-INJURY
     Dosage: 1 G, UNK IN TOTAL
     Route: 048
     Dates: start: 20181120, end: 20181120

REACTIONS (2)
  - Sopor [Recovering/Resolving]
  - Intentional self-injury [Recovering/Resolving]

NARRATIVE: CASE EVENT DATE: 20181120
